FAERS Safety Report 8693509 (Version 2)
Quarter: 2012Q4

REPORT INFORMATION
  Report Type: 
  Country: US (occurrence: US)
  Receive Date: 20120730
  Receipt Date: 20120913
  Transmission Date: 20130627
  Serious: Yes (Other)
  Sender: FDA-Public Use
  Company Number: US-GILEAD-2012-0056347

PATIENT
  Sex: Male

DRUGS (3)
  1. LETAIRIS [Suspect]
     Indication: PULMONARY HYPERTENSION
     Dosage: 5 mg, UNK
     Route: 048
  2. LETAIRIS [Suspect]
     Indication: SICKLE CELL ANAEMIA
  3. LETAIRIS [Suspect]
     Indication: LEFT VENTRICULAR DYSFUNCTION

REACTIONS (2)
  - Septic shock [Unknown]
  - Liver function test abnormal [Unknown]
